FAERS Safety Report 5527205-0 (Version None)
Quarter: 2007Q4

REPORT INFORMATION
  Report Type: 
  Country: None (occurrence: None)
  Receive Date: 20071121
  Receipt Date: 20071107
  Transmission Date: 20080405
  Serious: Yes (Death)
  Sender: FDA-Public Use
  Company Number: 2007001690

PATIENT
  Age: 79 Year
  Sex: Female
  Weight: 51.2565 kg

DRUGS (4)
  1. ERLOTINIB (ERLOTINIB HC1) (TABLET) (ERLOTINIB HC1) [Suspect]
     Indication: NEOPLASM MALIGNANT
     Dosage: 150 MG (150 MG, QD), ORAL
     Route: 048
     Dates: start: 20070417, end: 20070905
  2. BEVACIZUMAB (INJECTION FOR INFUSION) [Suspect]
     Indication: NEOPLASM MALIGNANT
     Dosage: 15 MG/KG (Q3W), INTRAVENOUS
     Route: 042
     Dates: start: 20070414
  3. PACLITAXEL [Suspect]
     Dosage: 131.25 MG/M^2 (Q3W), INTRAVENOUS
     Route: 042
     Dates: start: 20070417, end: 20070702
  4. CARBOPLATIN (CARBOPLATIN) (INJECTIOPN FOR INFUSION) [Suspect]
     Indication: NEOPLASM MALIGNANT
     Dosage: 45 AUC (Q3W), INTRAVENOUS
     Route: 042
     Dates: start: 20070417, end: 20070702

REACTIONS (14)
  - ASTHENIA [None]
  - ATAXIA [None]
  - ATELECTASIS [None]
  - BLOOD CHLORIDE INCREASED [None]
  - BLOOD SODIUM DECREASED [None]
  - BLOOD UREA INCREASED [None]
  - CARDIAC DISORDER [None]
  - CONSTIPATION [None]
  - DEHYDRATION [None]
  - LUNG DISORDER [None]
  - LUNG INFILTRATION [None]
  - PLEURAL EFFUSION [None]
  - PULMONARY OEDEMA [None]
  - SUDDEN DEATH [None]
